FAERS Safety Report 11449116 (Version 1)
Quarter: 2015Q3

REPORT INFORMATION
  Report Type: Spontaneous
  Country: JP (occurrence: JP)
  Receive Date: 20150902
  Receipt Date: 20150902
  Transmission Date: 20151125
  Serious: Yes (Other)
  Sender: FDA-Public Use
  Company Number: PHHY2015JP105731

PATIENT
  Age: 90 Year
  Sex: Female

DRUGS (7)
  1. BI SIFROL [Concomitant]
     Active Substance: PRAMIPEXOLE
     Indication: PRODUCT USED FOR UNKNOWN INDICATION
     Dosage: UNK
     Route: 065
  2. RIVASTACH [Suspect]
     Active Substance: RIVASTIGMINE
     Indication: SENILE DEMENTIA
     Dosage: 6.9 MG/24HOURS (13.5 MG DAILY RIVASTIGMINE BASE PATCH)
     Route: 062
  3. ROZEREM [Concomitant]
     Active Substance: RAMELTEON
     Indication: PRODUCT USED FOR UNKNOWN INDICATION
     Dosage: UNK
     Route: 065
  4. RIVASTACH [Suspect]
     Active Substance: RIVASTIGMINE
     Dosage: 6.9 MG/24HOURS (13.5 MG DAILY RIVASTIGMINE BASE PATCH) (CUT INTO ONE QUATER AND 2 PIECES)
     Route: 062
  5. RIZE [Concomitant]
     Active Substance: CLOTIAZEPAM
     Indication: PRODUCT USED FOR UNKNOWN INDICATION
     Dosage: UNK
     Route: 065
  6. FERO GRAD [Concomitant]
     Indication: PRODUCT USED FOR UNKNOWN INDICATION
     Dosage: 2 TO 3 TABLETS
     Route: 065
  7. REMINYL [Concomitant]
     Active Substance: GALANTAMINE
     Indication: PRODUCT USED FOR UNKNOWN INDICATION
     Dosage: UNK
     Route: 065

REACTIONS (6)
  - Skin exfoliation [Unknown]
  - Wrong technique in product usage process [Unknown]
  - Off label use [Unknown]
  - Skin erosion [Unknown]
  - Dermatitis contact [Unknown]
  - Cellulitis [Unknown]
